FAERS Safety Report 6403461-1 (Version None)
Quarter: 2009Q4

REPORT INFORMATION
  Report Type: 
  Country: None (occurrence: None)
  Receive Date: 20091013
  Receipt Date: 20091006
  Transmission Date: 20100525
  Serious: Yes (Hospitalization)
  Sender: FDA-Public Use
  Company Number: 2009SP015458

PATIENT
  Age: 69 Year
  Sex: Male
  Weight: 82 kg

DRUGS (5)
  1. TEMODAL [Suspect]
     Indication: NON-HODGKIN'S LYMPHOMA
     Dosage: 300 MG;QD
     Dates: start: 20090619, end: 20090623
  2. METHOTREXATE [Suspect]
     Indication: NON-HODGKIN'S LYMPHOMA
     Dosage: 7 GM; QD;IV
     Route: 042
     Dates: start: 20090619, end: 20090619
  3. METHOTREXATE [Suspect]
     Indication: NON-HODGKIN'S LYMPHOMA
     Dosage: 7 GM; QD;IV
     Route: 042
     Dates: start: 20090703, end: 20090703
  4. CYTARABINE [Suspect]
     Indication: DRUG USE FOR UNKNOWN INDICATION
     Dosage: 40 MG; QD; INTH
     Route: 037
     Dates: start: 20090619, end: 20090619
  5. METHYLPREDNISOLONE [Suspect]
     Indication: DRUG USE FOR UNKNOWN INDICATION
     Dosage: 40 MG; QD; INTH
     Route: 037
     Dates: start: 20090619, end: 20090619

REACTIONS (2)
  - DRUG CLEARANCE DECREASED [None]
  - RENAL FAILURE ACUTE [None]
